FAERS Safety Report 4357872-9 (Version None)
Quarter: 2004Q2

REPORT INFORMATION
  Report Type: 
  Country: None (occurrence: None)
  Receive Date: 20040514
  Receipt Date: 20040505
  Transmission Date: 20050107
  Serious: Yes (Death, Hospitalization)
  Sender: FDA-Public Use
  Company Number: PHBS2004TR06167

PATIENT
  Sex: Female
  Weight: 1 kg

DRUGS (7)
  1. CYCLOSPORINE [Suspect]
     Route: 064
  2. CORTICOSTEROID NOS [Concomitant]
     Route: 064
  3. FLUOCORTOLONE [Concomitant]
     Route: 064
  4. ACETAMINOPHEN [Concomitant]
     Route: 064
  5. CEFAZOLIN [Concomitant]
     Route: 064
  6. MISOPROSTOL [Concomitant]
     Route: 064
  7. FLUID/ELECTROLYTE REPLACEMENT THERAPY [Concomitant]
     Route: 064

REACTIONS (4)
  - DEATH NEONATAL [None]
  - DRUG EXPOSURE DURING PREGNANCY [None]
  - OLIGOHYDRAMNIOS [None]
  - PREMATURE BABY [None]
